FAERS Safety Report 6937605-X (Version None)
Quarter: 2010Q3

REPORT INFORMATION
  Report Type: 
  Country: None (occurrence: None)
  Receive Date: 20100823
  Receipt Date: 20100818
  Transmission Date: 20110219
  Serious: Yes (Other)
  Sender: FDA-Public Use
  Company Number: JP-MERCK-1008USA02856

PATIENT

DRUGS (2)
  1. JANUVIA [Suspect]
     Route: 048
  2. ARICEPT [Concomitant]
     Route: 048

REACTIONS (1)
  - DEMENTIA [None]
